FAERS Safety Report 17087182 (Version 1)
Quarter: 2019Q4

REPORT INFORMATION
  Report Type: Spontaneous
  Country: GB (occurrence: GB)
  Receive Date: 20191128
  Receipt Date: 20191128
  Transmission Date: 20200122
  Serious: Yes (Hospitalization)
  Sender: FDA-Public Use
  Company Number: GB-ACCORD-162871

PATIENT
  Age: 9 Year
  Sex: Male
  Weight: 30 kg

DRUGS (1)
  1. OXYBUTYNIN/OXYBUTYNIN HYDROCHLORIDE [Suspect]
     Active Substance: OXYBUTYNIN
     Indication: ENURESIS
     Route: 048
     Dates: start: 20190720, end: 20191015

REACTIONS (1)
  - Generalised tonic-clonic seizure [Recovered/Resolved]

NARRATIVE: CASE EVENT DATE: 20191016
